FAERS Safety Report 7466359-6 (Version None)
Quarter: 2011Q2

REPORT INFORMATION
  Report Type: 
  Country: None (occurrence: None)
  Receive Date: 20110509
  Receipt Date: 20100805
  Transmission Date: 20111010
  Serious: No
  Sender: FDA-Public Use
  Company Number: US-ALEXION-A201000941

PATIENT
  Sex: Male

DRUGS (8)
  1. SOLIRIS [Suspect]
     Indication: PAROXYSMAL NOCTURNAL HAEMOGLOBINURIA
     Dosage: 600 MG, QW
     Route: 042
     Dates: start: 20100706, end: 20100803
  2. SOLIRIS [Suspect]
     Dosage: 900 MG, UNK
     Dates: start: 20100810
  3. PRILOSEC [Concomitant]
     Indication: GASTRITIS PROPHYLAXIS
     Dosage: 20 MG, QD
  4. ALDACTONE [Concomitant]
     Indication: ASCITES
     Dosage: 100 MG, BID
  5. COUMADIN [Concomitant]
     Indication: BUDD-CHIARI SYNDROME
     Dosage: 5 MG, QD
  6. LASIX [Concomitant]
     Indication: ASCITES
     Dosage: 40 MG, BID
  7. FOLIC ACID [Concomitant]
     Indication: IRON DEFICIENCY
     Dosage: 1 MG, QD
  8. IRON SULFATETHIAMIN COMPOUND TAB [Concomitant]
     Indication: IRON DEFICIENCY
     Dosage: 325 MG, QD

REACTIONS (1)
  - ABDOMINAL CAVITY DRAINAGE [None]
